FAERS Safety Report 8352804-0 (Version None)
Quarter: 2012Q2

REPORT INFORMATION
  Report Type: 
  Country: None (occurrence: None)
  Receive Date: 20120511
  Receipt Date: 20090311
  Transmission Date: 20120825
  Serious: No
  Sender: FDA-Public Use
  Company Number: US-TEVA-2009001900

PATIENT
  Age: 65 Year
  Sex: Male
  Weight: 83.99 kg

DRUGS (2)
  1. TREANDA [Suspect]
     Route: 042
  2. TREANDA [Suspect]
     Indication: NON-HODGKIN'S LYMPHOMA
     Route: 042
     Dates: start: 20080601

REACTIONS (2)
  - INJECTION SITE PHLEBITIS [None]
  - VASCULAR INJURY [None]
